FAERS Safety Report 7052603-6 (Version None)
Quarter: 2010Q4

REPORT INFORMATION
  Report Type: 
  Country: None (occurrence: None)
  Receive Date: 20101019
  Receipt Date: 20101013
  Transmission Date: 20110411
  Serious: Yes (Other)
  Sender: FDA-Public Use
  Company Number: FI-PFIZER INC-2010122849

PATIENT
  Age: 55 Year
  Sex: Female

DRUGS (11)
  1. CELEBRA [Suspect]
     Indication: ARTHRALGIA
     Dosage: 200 MG 1-2 TIMES DAILY
     Dates: start: 20090501, end: 20100801
  2. CELEBRA [Suspect]
     Indication: JOINT EFFUSION
  3. LEPONEX ^NOVARTIS^ [Concomitant]
     Dosage: 500 MG DAILY
  4. TEMESTA [Concomitant]
     Dosage: 1 MG, 1X/DAY
  5. LYRICA [Concomitant]
     Dosage: 150 MG, 2X/DAY
  6. ZELDOX /SWE/ [Concomitant]
     Dosage: 80 MG, 2X/DAY
  7. ASASANTIN RETARD [Concomitant]
     Dosage: ONE DOSE TWICE DAILY
     Dates: start: 20100701
  8. PERINDOPRIL ERBUMINE [Concomitant]
     Dosage: 5 MG, 1X/DAY
     Dates: start: 20100701
  9. ARTHRYL [Concomitant]
  10. PANADOL [Concomitant]
     Dosage: UNK
  11. PANACOD [Concomitant]
     Dosage: UNK

REACTIONS (1)
  - SCHIZOPHRENIA [None]
